FAERS Safety Report 24560727 (Version 1)
Quarter: 2024Q4

REPORT INFORMATION
  Report Type: Spontaneous
  Country: US (occurrence: None)
  Receive Date: 20241028
  Receipt Date: 20241028
  Transmission Date: 20250114
  Serious: Yes (Hospitalization)
  Sender: Public
  Company Number: None

PATIENT
  Age: 74 Year
  Sex: Male

DRUGS (2)
  1. GABAPENTIN [Suspect]
     Active Substance: GABAPENTIN
  2. TORSEMIDE [Suspect]
     Active Substance: TORSEMIDE

REACTIONS (3)
  - Renal injury [None]
  - Myoclonus [None]
  - Rhabdomyolysis [None]

NARRATIVE: CASE EVENT DATE: 20240630
